FAERS Safety Report 10936532 (Version 1)
Quarter: 2015Q1

REPORT INFORMATION
  Report Type: Spontaneous
  Country: US (occurrence: None)
  Receive Date: 20150212
  Receipt Date: 20150212
  Transmission Date: 20150721
  Serious: No
  Sender: FDA-Public Use
  Company Number: TPA2011A05993

PATIENT
  Age: 50 Year
  Sex: Male
  Weight: 115.67 kg

DRUGS (1)
  1. ULORIC [Suspect]
     Active Substance: FEBUXOSTAT
     Indication: GOUT
     Dosage: 1 IN 1 D
     Route: 048
     Dates: start: 2009

REACTIONS (2)
  - Liver function test abnormal [None]
  - Blood uric acid increased [None]

NARRATIVE: CASE EVENT DATE: 20110906
